FAERS Safety Report 5266706-X (Version None)
Quarter: 2007Q1

REPORT INFORMATION
  Report Type: 
  Country: None (occurrence: None)
  Receive Date: 20070315
  Receipt Date: 20070309
  Transmission Date: 20070707
  Serious: Yes (Hospitalization, Other)
  Sender: FDA-Public Use
  Company Number: JP-MERCK-0703USA00862

PATIENT
  Age: 88 Year
  Sex: Male

DRUGS (5)
  1. STROMECTOL [Suspect]
     Indication: ACARODERMATITIS
     Route: 048
     Dates: start: 20070223, end: 20070223
  2. COZAAR [Concomitant]
     Route: 048
  3. LENDORMIN [Concomitant]
     Route: 048
  4. PARIET [Concomitant]
     Route: 048
  5. KETAS [Concomitant]
     Route: 048

REACTIONS (4)
  - ANOREXIA [None]
  - DEHYDRATION [None]
  - DEPRESSED LEVEL OF CONSCIOUSNESS [None]
  - LIVER DISORDER [None]
